FAERS Safety Report 24651798 (Version 1)
Quarter: 2024Q4

REPORT INFORMATION
  Report Type: Spontaneous
  Country: US (occurrence: US)
  Receive Date: 20241122
  Receipt Date: 20241122
  Transmission Date: 20250114
  Serious: No
  Sender: ALVOGEN
  Company Number: US-ALVOGEN-2024093296

PATIENT
  Sex: Female

DRUGS (3)
  1. TERIPARATIDE [Suspect]
     Active Substance: TERIPARATIDE
     Indication: Osteoporosis
     Dosage: SHE HAD BEEN ON THIS MEDICATION FOR A YEAR AND HALF NOW.
  2. TERIPARATIDE [Suspect]
     Active Substance: TERIPARATIDE
     Indication: Osteoporosis
     Dosage: BOX 2-PREVIOUS PEN, EXP. DATE: UU-NOV-2024, S/N 032438058179, GTIN:00347781652890
     Dates: start: 20240224
  3. TERIPARATIDE [Suspect]
     Active Substance: TERIPARATIDE
     Indication: Osteoporosis
     Dosage: BOX 1-CURRENT PEN, EXP. DATE: UU-NOV-2024, S/N: 031658650606, GTIN: 00347781652890

REACTIONS (4)
  - Injection site bruising [Unknown]
  - Product dose omission issue [Unknown]
  - Product odour abnormal [Unknown]
  - Poor quality product administered [Unknown]

NARRATIVE: CASE EVENT DATE: 20240301
